FAERS Safety Report 25898956 (Version 1)
Quarter: 2025Q4

REPORT INFORMATION
  Report Type: Spontaneous
  Country: EU (occurrence: EU)
  Receive Date: 20251009
  Receipt Date: 20251009
  Transmission Date: 20260117
  Serious: Yes (Life-Threatening, Other)
  Sender: SANDOZ
  Company Number: EU-ADIENNEP-2025AD000751

PATIENT
  Sex: Male

DRUGS (4)
  1. ALKERAN [Suspect]
     Active Substance: MELPHALAN
     Indication: Allogenic stem cell transplantation
     Dosage: UNK
     Route: 065
     Dates: start: 2023, end: 2023
  2. BUSULFAN [Suspect]
     Active Substance: BUSULFAN
     Indication: Allogenic stem cell transplantation
     Dosage: UNK
     Route: 065
     Dates: start: 2023, end: 2023
  3. CYCLOSPORINE [Suspect]
     Active Substance: CYCLOSPORINE
     Indication: Prophylaxis against graft versus host disease
     Dosage: UNK, FROM DAY -3 UNTIL DISCHARGE (CYCLOSPORINE A)
     Route: 065
     Dates: start: 2023
  4. CYCLOPHOSPHAMIDE [Suspect]
     Active Substance: CYCLOPHOSPHAMIDE
     Indication: Allogenic stem cell transplantation
     Dosage: UNK
     Route: 065
     Dates: start: 2023, end: 2023

REACTIONS (2)
  - Acute graft versus host disease in intestine [Recovering/Resolving]
  - Engraftment syndrome [Recovered/Resolved]
